FAERS Safety Report 7108438-9 (Version None)
Quarter: 2010Q4

REPORT INFORMATION
  Report Type: 
  Country: None (occurrence: None)
  Receive Date: 20101117
  Receipt Date: 20101102
  Transmission Date: 20110411
  Serious: Yes (Other)
  Sender: FDA-Public Use
  Company Number: B0679058A

PATIENT
  Sex: Male

DRUGS (2)
  1. FLUTIDE DISKUS [Suspect]
     Indication: ASTHMA
     Dosage: 100MCG PER DAY
     Route: 055
     Dates: start: 20080315, end: 20101007
  2. NIVADIL [Concomitant]
     Indication: HYPERTENSION
     Dosage: 8MG PER DAY
     Route: 048

REACTIONS (4)
  - HEAD INJURY [None]
  - LOSS OF CONSCIOUSNESS [None]
  - NECK INJURY [None]
  - PRODUCT QUALITY ISSUE [None]
